FAERS Safety Report 8223335-3 (Version None)
Quarter: 2012Q1

REPORT INFORMATION
  Report Type: 
  Country: None (occurrence: None)
  Receive Date: 20120312
  Receipt Date: 20120312
  Transmission Date: 20120608
  Serious: Yes (Other)
  Sender: FDA-Public Use
  Company Number: 2012SP012021

PATIENT
  Sex: Female

DRUGS (2)
  1. RIBAVIRIN [Suspect]
     Indication: HEPATITIS C
     Dates: start: 20120226
  2. PEG-INTRON [Suspect]
     Indication: HEPATITIS C
     Dates: start: 20120226

REACTIONS (4)
  - INJECTION SITE RASH [None]
  - INJECTION SITE ERYTHEMA [None]
  - DYSPNOEA [None]
  - SWOLLEN TONGUE [None]
